FAERS Safety Report 24873375 (Version 2)
Quarter: 2025Q1

REPORT INFORMATION
  Report Type: Spontaneous
  Country: US (occurrence: US)
  Receive Date: 20250122
  Receipt Date: 20250131
  Transmission Date: 20250408
  Serious: No
  Sender: SANOFI AVENTIS
  Company Number: US-SA-2025SA019390

PATIENT
  Sex: Female
  Weight: 86.36 kg

DRUGS (15)
  1. DUPIXENT [Suspect]
     Active Substance: DUPILUMAB
     Indication: Dermatitis atopic
     Dosage: 300 MG, QOW
     Route: 058
  2. DULOXETINE [Concomitant]
     Active Substance: DULOXETINE
  3. CYCLOBENZAPRINE [Concomitant]
     Active Substance: CYCLOBENZAPRINE
  4. TIZANIDINE [Concomitant]
     Active Substance: TIZANIDINE
  5. METHYLPREDNISOLONE [Concomitant]
     Active Substance: METHYLPREDNISOLONE
  6. OSELTAMIVIR PHOSPHATE [Concomitant]
     Active Substance: OSELTAMIVIR PHOSPHATE
  7. PREGABALIN [Concomitant]
     Active Substance: PREGABALIN
  8. DENTAGEL [Concomitant]
     Active Substance: SODIUM FLUORIDE
  9. AMOXICILLIN [Concomitant]
     Active Substance: AMOXICILLIN
  10. KETOCONAZOLE [Concomitant]
     Active Substance: KETOCONAZOLE
  11. ACARBOSE [Concomitant]
     Active Substance: ACARBOSE
  12. ACETAMINOPHEN\HYDROCODONE [Concomitant]
     Active Substance: ACETAMINOPHEN\HYDROCODONE
  13. METOPROLOL SUCCINATE [Concomitant]
     Active Substance: METOPROLOL SUCCINATE
  14. GEMTESA [Concomitant]
     Active Substance: VIBEGRON
  15. LISDEXAMFETAMINE DIMESYLATE [Concomitant]
     Active Substance: LISDEXAMFETAMINE DIMESYLATE

REACTIONS (8)
  - Peripheral swelling [Unknown]
  - Skin haemorrhage [Unknown]
  - Nerve injury [Unknown]
  - Neuralgia [Unknown]
  - Grip strength decreased [Unknown]
  - Asthenia [Unknown]
  - Limb injury [Unknown]
  - Feeling abnormal [Unknown]
